FAERS Safety Report 4492424-1 (Version None)
Quarter: 2004Q4

REPORT INFORMATION
  Report Type: 
  Country: None (occurrence: None)
  Receive Date: 20041029
  Receipt Date: 20041019
  Transmission Date: 20050328
  Serious: Yes (Hospitalization)
  Sender: FDA-Public Use
  Company Number: K200401631

PATIENT
  Age: 88 Year
  Sex: Female

DRUGS (6)
  1. ALTACE [Suspect]
     Dosage: QD, ORAL
     Route: 048
     Dates: end: 20040416
  2. FUROSEMIDE [Suspect]
     Indication: CARDIAC FAILURE
     Dosage: 20 MG, QD, ORAL
     Route: 048
     Dates: end: 20040416
  3. HEMIGOXINE NATIVELLE(DIGOXIN) TABELT, 0.125MG [Suspect]
     Indication: ATRIAL FIBRILLATION
     Dosage: 0.125 MG, QD, ORAL
     Route: 048
     Dates: start: 20040115, end: 20040416
  4. LEXOMIL(BROMAZEPAM) 6MG [Suspect]
     Indication: DYSTHYMIC DISORDER
     Dosage: 6 MG, QD, ORAL
     Route: 048
     Dates: start: 20040215, end: 20040416
  5. PROZAC [Suspect]
     Indication: DYSTHYMIC DISORDER
     Dosage: 6 MG, QD, ORAL
     Route: 048
     Dates: start: 20040215, end: 20040416
  6. CARDENSIL (BISOPROLOL FUMARATE) [Suspect]
     Indication: ATRIAL FIBRILLATION
     Dates: start: 20040101, end: 20040416

REACTIONS (10)
  - AGITATION [None]
  - ANXIETY [None]
  - BLOOD THYROID STIMULATING HORMONE INCREASED [None]
  - CARDIOACTIVE DRUG LEVEL INCREASED [None]
  - CONFUSIONAL STATE [None]
  - DEPRESSION [None]
  - DYSTHYMIC DISORDER [None]
  - HYPOTHYROIDISM [None]
  - RENAL FAILURE CHRONIC [None]
  - TRI-IODOTHYRONINE INCREASED [None]
